FAERS Safety Report 19412633 (Version 2)
Quarter: 2021Q3

REPORT INFORMATION
  Report Type: Spontaneous
  Country: US (occurrence: US)
  Receive Date: 20210614
  Receipt Date: 20210722
  Transmission Date: 20211014
  Serious: Yes (Other)
  Sender: FDA-Public Use
  Company Number: US-SA-2021SA188955

PATIENT
  Age: 44 Year
  Sex: Female
  Weight: 64 kg

DRUGS (7)
  1. PLAVIX [Suspect]
     Active Substance: CLOPIDOGREL BISULFATE
     Indication: MYOCARDIAL INFARCTION
     Dosage: UNK
     Route: 065
  2. PLAVIX [Suspect]
     Active Substance: CLOPIDOGREL BISULFATE
     Indication: CHEST PAIN
  3. PLAVIX [Suspect]
     Active Substance: CLOPIDOGREL BISULFATE
     Indication: ANTICOAGULANT THERAPY
  4. GLYCERYL TRINITRATE [Suspect]
     Active Substance: NITROGLYCERIN
     Dosage: UNK
     Route: 065
  5. ELIQUIS [Suspect]
     Active Substance: APIXABAN
     Dosage: UNK
     Route: 065
  6. COUMADIN [Suspect]
     Active Substance: WARFARIN SODIUM
     Dosage: 10MG
     Route: 065
  7. APIXABAN [Suspect]
     Active Substance: APIXABAN
     Dosage: 10 MG 2 X DAY, TRADENAME:ELIQUIS
     Route: 065

REACTIONS (14)
  - Ocular discomfort [Unknown]
  - Pain in extremity [Unknown]
  - Confusional state [Unknown]
  - Arthralgia [Unknown]
  - Product use issue [Unknown]
  - Feeling abnormal [Unknown]
  - Burning sensation [Unknown]
  - Asthenia [Unknown]
  - Chest pain [Unknown]
  - Dizziness [Unknown]
  - Angina pectoris [Unknown]
  - Headache [Unknown]
  - Disorientation [Unknown]
  - Nausea [Unknown]
